FAERS Safety Report 19177610 (Version 1)
Quarter: 2021Q2

REPORT INFORMATION
  Report Type: Spontaneous
  Country: JP (occurrence: JP)
  Receive Date: 20210426
  Receipt Date: 20210426
  Transmission Date: 20210717
  Serious: Yes (Death, Hospitalization, Other)
  Sender: FDA-Public Use
  Company Number: JP-SUN PHARMACEUTICAL INDUSTRIES LTD-2021RR-292317

PATIENT
  Age: 63 Year
  Sex: Female

DRUGS (3)
  1. EXEMESTANE. [Suspect]
     Active Substance: EXEMESTANE
     Indication: MYELOSUPPRESSION
     Dosage: 25 MILLIGRAM, DAILY
     Route: 065
     Dates: start: 200803
  2. ZOLEDRONIC ACID [Suspect]
     Active Substance: ZOLEDRONIC ACID
     Indication: MYELOSUPPRESSION
     Dosage: 4 MILLIGRAM, 1DOSE/4WEEKS
     Route: 042
  3. CAPECITABINE. [Suspect]
     Active Substance: CAPECITABINE
     Indication: MYELOSUPPRESSION
     Dosage: 2.400 MILLIGRAM, DAILY, DAY 1?21, DAY 22?28 WITHDRAWAL
     Route: 048
     Dates: start: 200611

REACTIONS (2)
  - Palmar-plantar erythrodysaesthesia syndrome [Unknown]
  - Disease progression [Unknown]
